FAERS Safety Report 5661906-9 (Version None)
Quarter: 2008Q1

REPORT INFORMATION
  Report Type: 
  Country: None (occurrence: None)
  Receive Date: 20080312
  Receipt Date: 20080228
  Transmission Date: 20080703
  Serious: Yes (Other)
  Sender: FDA-Public Use
  Company Number: DE-ASTRAZENECA-2008PK00466

PATIENT
  Age: 660 Month
  Sex: Female
  Weight: 55 kg

DRUGS (3)
  1. METOPROLOL SUCCINATE [Suspect]
     Indication: ARRHYTHMIA
     Route: 048
     Dates: start: 20020101
  2. METOPROLOL SUCCINATE [Suspect]
     Indication: MIGRAINE
     Route: 048
     Dates: start: 20020101
  3. BLOPRESS [Suspect]
     Indication: ESSENTIAL HYPERTENSION
     Route: 048
     Dates: start: 20070901

REACTIONS (1)
  - WHITE BLOOD CELL COUNT DECREASED [None]
